FAERS Safety Report 17796839 (Version 1)
Quarter: 2020Q2

REPORT INFORMATION
  Report Type: Report from Study
  Country: None (occurrence: GR)
  Receive Date: 20200518
  Receipt Date: 20200518
  Transmission Date: 20200714
  Serious: Yes (Death, Hospitalization)
  Sender: FDA-Public Use
  Company Number: GR-ABBVIE-20K-066-3407442-00

PATIENT
  Sex: Male

DRUGS (6)
  1. DUODOPA [Suspect]
     Active Substance: CARBIDOPA\LEVODOPA
     Indication: PARKINSON^S DISEASE
     Dosage: MORNING DOSE: 10ML; CONTINUOUS RATE: 4.3ML/H; EXTRA DOSE: 1.5ML
     Route: 050
     Dates: start: 20180423
  2. LEPONEX [Concomitant]
     Active Substance: CLOZAPINE
     Indication: DEPRESSION
     Route: 048
  3. ESCITALOPRAM [Concomitant]
     Active Substance: ESCITALOPRAM OXALATE
     Indication: DEPRESSION
     Route: 048
  4. STILNOX [Concomitant]
     Active Substance: ZOLPIDEM TARTRATE
     Indication: INSOMNIA
     Route: 048
  5. EXELON [Concomitant]
     Active Substance: RIVASTIGMINE TARTRATE
     Indication: PRODUCT USED FOR UNKNOWN INDICATION
     Route: 062
  6. QUEPIN [Concomitant]
     Active Substance: QUETIAPINE
     Indication: INSOMNIA
     Route: 048

REACTIONS (3)
  - Parkinson^s disease [Fatal]
  - Hyponatraemia [Unknown]
  - Nosocomial infection [Fatal]
